FAERS Safety Report 9283893 (Version 2)
Quarter: 2013Q3

REPORT INFORMATION
  Report Type: Report from Study
  Country: US (occurrence: US)
  Receive Date: 20130510
  Receipt Date: 20130808
  Transmission Date: 20140515
  Serious: Yes (Other)
  Sender: FDA-Public Use
  Company Number: PHEH2013US010140

PATIENT
  Age: 72 Year
  Sex: Female
  Weight: 70 kg

DRUGS (8)
  1. GLEEVEC [Suspect]
     Indication: CHRONIC MYELOID LEUKAEMIA
     Dosage: 200 MG, BID
     Route: 048
     Dates: start: 20070215
  2. CYMBALTA [Concomitant]
     Dosage: UNK UKN, UNK
  3. CENTRUM SILVER [Concomitant]
     Dosage: UNK UKN, UNK
  4. PROTONIX [Concomitant]
     Dosage: UNK UKN, UNK
  5. SYNTHROID [Concomitant]
     Dosage: UNK UKN, UNK
  6. ACETAMINOPHEN [Concomitant]
     Dosage: UNK UKN, UNK
  7. AMITRIPTYLINE HYDROCHLORIDE [Concomitant]
     Dosage: UNK UKN, UNK
  8. DEPLIN [Concomitant]
     Dosage: UNK UKN, UNK

REACTIONS (3)
  - Fall [Unknown]
  - Fractured coccyx [Unknown]
  - Pain [Unknown]
